FAERS Safety Report 6795077-2 (Version None)
Quarter: 2010Q2

REPORT INFORMATION
  Report Type: 
  Country: None (occurrence: None)
  Receive Date: 20100625
  Receipt Date: 20100621
  Transmission Date: 20101027
  Serious: Yes (Death, Hospitalization, Disabling)
  Sender: FDA-Public Use
  Company Number: PHHY2010US26179

PATIENT
  Sex: Female

DRUGS (40)
  1. GLEEVEC [Suspect]
     Indication: CHRONIC MYELOID LEUKAEMIA
     Dosage: 400 MG, UNK
     Dates: start: 20091112
  2. GLEEVEC [Suspect]
     Indication: THROMBOCYTOPENIA
     Dosage: FOUR 100 MG TABLETS DAILY
     Route: 048
     Dates: start: 20100106
  3. ALDACTONE [Concomitant]
     Dosage: 25 MG, Q8H
     Dates: start: 20100331
  4. FUROSEMIDE [Concomitant]
     Dosage: UNK
     Dates: start: 20100219
  5. FUROSEMIDE [Concomitant]
     Dosage: 1 TABLET DAILY
     Dates: start: 20100331
  6. PANTOPRAZOLE [Concomitant]
     Dosage: UNK
     Dates: start: 20090924
  7. PANTOPRAZOLE [Concomitant]
     Dosage: UNK
     Dates: start: 20100330
  8. KLOR-CON [Concomitant]
     Dosage: 20 MEQ FR
     Dates: start: 20100219
  9. KLOR-CON [Concomitant]
     Dosage: UNK
     Dates: start: 20100325
  10. OXYCODONE HCL [Concomitant]
     Dosage: APAP 5-325 MG
     Dates: start: 20091207
  11. OXYCODONE HCL [Concomitant]
     Dosage: APAP 5-325 MG
     Dates: start: 20100323
  12. OXYCOD [Concomitant]
     Dosage: TAB 5-325 MG
     Dates: start: 20100118
  13. OXYCOD [Concomitant]
     Dosage: TAB 5-325 MG
     Dates: start: 20100128
  14. HYDROCODONE [Concomitant]
     Dosage: APAP 5-500 MG
     Dates: start: 20091007
  15. HYDROCODONE [Concomitant]
     Dosage: APAP 5-500 MG
     Dates: start: 20100308
  16. HYDROCODONE [Concomitant]
     Dosage: APAP TAB 5-500 MG
     Dates: start: 20100318
  17. HYDROCHLOROTHIAZIDE [Concomitant]
     Dosage: UNK
     Dates: start: 20100215
  18. ZOLPIDEM [Concomitant]
     Dosage: UNK
     Dates: start: 20091007
  19. ZOLPIDEM [Concomitant]
     Dosage: UNK
     Dates: start: 20100118
  20. ZOLPIDEM [Concomitant]
     Dosage: UNK
     Dates: start: 20100215
  21. ADVAIR DISKUS 100/50 [Concomitant]
     Dosage: UNK
     Dates: start: 20090608
  22. ADVAIR DISKUS 100/50 [Concomitant]
     Dosage: UNK
     Dates: start: 20100201
  23. ONDANSETRON [Concomitant]
     Dosage: UNK
     Dates: start: 20091109
  24. ONDANSETRON [Concomitant]
     Dosage: UNK
     Dates: start: 20091202
  25. ONDANSETRON [Concomitant]
     Dosage: PLACE TABLET ON TONGUE AND ALLOW TO DISSOLVE TWICE DAILY
     Dates: start: 20091211
  26. PROCHLORPERAZINE [Concomitant]
     Dosage: 10 MG, UNK
     Dates: start: 20091203
  27. ACYCLOVIR [Concomitant]
     Dosage: 400 MG, UNK
     Dates: start: 20091109
  28. COTRIM [Concomitant]
     Dosage: DS 800- 160
     Dates: start: 20091109
  29. EVISTA [Concomitant]
     Dosage: UNK
     Dates: start: 20091012
  30. CLONAZEPAM [Concomitant]
     Dosage: UNK
     Dates: start: 20090930
  31. AMLODIPINE [Concomitant]
     Dosage: UNK
     Dates: start: 20090924
  32. PREDNISONE [Concomitant]
     Dosage: UNK
     Dates: start: 20090703
  33. PREDNISONE [Concomitant]
     Dosage: UNK
     Dates: start: 20090924
  34. PROMETHAZINE [Concomitant]
     Dosage: UNK
     Dates: start: 20090924
  35. INDOMETHACIN [Concomitant]
     Dosage: UNK
     Dates: start: 20090617
  36. LEVAQUIN [Concomitant]
     Dosage: UNK
     Dates: start: 20090617
  37. LISINOPRIL [Concomitant]
     Dosage: UNK
     Dates: start: 20090427
  38. STEROIDS NOS [Concomitant]
  39. RALOXIFENE HCL [Concomitant]
  40. ZESTRIL [Concomitant]

REACTIONS (3)
  - BLINDNESS UNILATERAL [None]
  - DEATH [None]
  - RETINAL ARTERY THROMBOSIS [None]
